FAERS Safety Report 11054565 (Version 1)
Quarter: 2015Q2

REPORT INFORMATION
  Report Type: Spontaneous
  Country: US (occurrence: None)
  Receive Date: 20150420
  Receipt Date: 20150420
  Transmission Date: 20150821
  Serious: Yes (Hospitalization)
  Sender: FDA-Public Use
  Company Number: 2015ST000061

PATIENT
  Age: 53 Year
  Sex: Female
  Weight: 86.2 kg

DRUGS (1)
  1. UCERIS [Suspect]
     Active Substance: BUDESONIDE
     Indication: COLITIS ULCERATIVE
     Dates: start: 20150220, end: 20150303

REACTIONS (6)
  - Malaise [None]
  - Pyrexia [None]
  - Oral candidiasis [None]
  - Fatigue [None]
  - Movement disorder [None]
  - Back disorder [None]

NARRATIVE: CASE EVENT DATE: 20150223
